FAERS Safety Report 9492455 (Version 2)
Quarter: 2014Q2

REPORT INFORMATION
  Report Type: Spontaneous
  Country: US (occurrence: US)
  Receive Date: 20130830
  Receipt Date: 20140411
  Transmission Date: 20141212
  Serious: Yes (Hospitalization)
  Sender: FDA-Public Use
  Company Number: US-B.I. PHARMACEUTICALS,INC./RIDGEFIELD-2013-BI-26707BP

PATIENT
  Sex: Female
  Weight: 88 kg

DRUGS (31)
  1. PRADAXA [Suspect]
     Indication: ATRIAL FIBRILLATION
     Dosage: 300 MG
     Route: 048
     Dates: start: 20110722, end: 2012
  2. PRADAXA [Suspect]
     Indication: ANTICOAGULANT THERAPY
  3. FOSAMAX [Concomitant]
     Dosage: 10 MG
     Route: 048
  4. AMLODIPINE [Concomitant]
     Route: 048
  5. ISOSORBIDE DINITRATE [Concomitant]
     Dosage: 60 MG
     Route: 048
     Dates: start: 2000, end: 2011
  6. VITAMIN C NATURAL WITH ROSE HIPS [Concomitant]
     Dosage: 500 MG
     Route: 048
  7. ARIMIDEX [Concomitant]
     Dosage: 1 MG
     Route: 048
  8. ASPIRIN [Concomitant]
     Dosage: 81 MG
     Route: 048
  9. CO Q10 [Concomitant]
     Dosage: 100 MG
     Route: 048
  10. FOLIC ACID W/DHA [Concomitant]
     Dosage: 1200 MG
     Route: 048
  11. XALANTAN INSTILL [Concomitant]
     Route: 050
  12. SIMVASTATIN [Concomitant]
     Dosage: 40 MG
     Route: 048
     Dates: start: 2008
  13. VITAMIN D3 [Concomitant]
     Dosage: 800 U
     Route: 048
  14. TUMS [Concomitant]
     Route: 065
  15. LASIX [Concomitant]
     Indication: OEDEMA
     Route: 048
     Dates: start: 2001, end: 2011
  16. DIPHENDRAMINE [Concomitant]
     Route: 048
  17. PHENYLEPRINE [Concomitant]
     Route: 065
  18. CLORAZEPATE [Concomitant]
     Indication: ANXIETY
     Route: 048
     Dates: start: 2000
  19. CLONIDINE [Concomitant]
     Indication: HYPERTENSION
     Route: 048
  20. MULTIVITAMIN [Concomitant]
     Route: 048
  21. HYDROCODONE/APAP [Concomitant]
     Route: 048
  22. APPLE CIDER VITAMIN [Concomitant]
     Route: 048
  23. LOMOTIL [Concomitant]
     Indication: DIARRHOEA
     Route: 065
  24. HYDRALAZINE HCL [Concomitant]
     Dosage: 75 MG
     Route: 048
     Dates: start: 2000
  25. HYCODAN COUGH SYRUP [Concomitant]
     Indication: COUGH
     Route: 065
  26. EVENING PRIMROSE OIL [Concomitant]
     Dosage: 500 MG
     Route: 048
  27. METAMUCIL [Concomitant]
     Indication: HAEMORRHOIDS
     Route: 065
  28. FEOSOL [Concomitant]
     Dosage: 65 MG
     Route: 048
     Dates: start: 20110916
  29. ASTEPRO [Concomitant]
     Route: 050
     Dates: start: 20111128
  30. GABAPENTIN [Concomitant]
     Route: 065
     Dates: start: 2010
  31. DIOVAN [Concomitant]
     Route: 065
     Dates: start: 2000

REACTIONS (2)
  - Haemorrhage [Unknown]
  - Myocardial infarction [Unknown]
